FAERS Safety Report 22849484 (Version 3)
Quarter: 2023Q4

REPORT INFORMATION
  Report Type: Report from Study
  Country: JP (occurrence: JP)
  Receive Date: 20230822
  Receipt Date: 20231019
  Transmission Date: 20240110
  Serious: Yes (Life-Threatening, Hospitalization, Other)
  Sender: FDA-Public Use
  Company Number: JP-JNJFOC-20230834343

PATIENT
  Age: 72 Year
  Sex: Male
  Weight: 63.6 kg

DRUGS (20)
  1. VELCADE [Suspect]
     Active Substance: BORTEZOMIB
     Indication: Plasma cell myeloma
     Dosage: 1 TO 2 COURSE
     Route: 058
     Dates: start: 20230627, end: 20230728
  2. DARATUMUMAB [Suspect]
     Active Substance: DARATUMUMAB
     Indication: Plasma cell myeloma
     Dosage: 1 TO 2 COURSE
     Route: 058
     Dates: start: 20230627, end: 20230725
  3. ALKERAN [Suspect]
     Active Substance: MELPHALAN
     Indication: Plasma cell myeloma
     Route: 048
     Dates: start: 20230627, end: 20230630
  4. PREDNISOLONE [Concomitant]
     Active Substance: PREDNISOLONE
     Indication: Plasma cell myeloma
     Dosage: DOSE UNKNOWN
     Route: 065
  5. PREDNISOLONE [Concomitant]
     Active Substance: PREDNISOLONE
     Indication: Plasma cell myeloma
     Dosage: DOSE UNKNOWN
     Route: 065
  6. RAMELTEON [Concomitant]
     Active Substance: RAMELTEON
     Indication: Product used for unknown indication
     Dosage: DOSE UNKNOWN
     Route: 065
  7. BELSOMRA [Concomitant]
     Active Substance: SUVOREXANT
     Indication: Product used for unknown indication
     Dosage: DOSE UNKNOWN
     Route: 065
  8. DUTASTERIDE [Concomitant]
     Active Substance: DUTASTERIDE
     Indication: Product used for unknown indication
     Dosage: DOSE UNKNOWN
     Route: 065
  9. SILODOSIN [Concomitant]
     Active Substance: SILODOSIN
     Indication: Product used for unknown indication
     Dosage: DOSE UNKNOWN
     Route: 065
  10. PANTETHINE [Concomitant]
     Active Substance: PANTETHINE
     Indication: Product used for unknown indication
     Dosage: DOSE UNKNOWN
     Route: 065
  11. MAGNESIUM OXIDE [Concomitant]
     Active Substance: MAGNESIUM OXIDE
     Indication: Product used for unknown indication
     Dosage: DOSE UNKNOWN
     Route: 065
  12. NALDEMEDINE TOSYLATE [Concomitant]
     Active Substance: NALDEMEDINE TOSYLATE
     Dosage: DOSE UNKNOWN
     Route: 065
     Dates: start: 20230615
  13. ZOVIRAX [Concomitant]
     Active Substance: ACYCLOVIR
     Indication: Product used for unknown indication
     Dosage: DOSE UNKNOWN
     Route: 065
  14. VONOPRAZAN FUMARATE [Concomitant]
     Active Substance: VONOPRAZAN FUMARATE
     Indication: Product used for unknown indication
     Dosage: DOSE UNKNOWN
     Route: 065
  15. SULFAMETHOXAZOLE\TRIMETHOPRIM [Concomitant]
     Active Substance: SULFAMETHOXAZOLE\TRIMETHOPRIM
     Indication: Product used for unknown indication
     Dosage: DOSE UNKNOWN
     Route: 065
     Dates: start: 20230627
  16. AMITIZA [Concomitant]
     Active Substance: LUBIPROSTONE
     Indication: Product used for unknown indication
     Dosage: DOSE UNKNOWN
     Route: 065
     Dates: start: 20230603
  17. HERBALS [Concomitant]
     Active Substance: HERBALS
     Indication: Product used for unknown indication
     Dosage: DOSE UNKNOWN
     Route: 065
     Dates: start: 20230710
  18. FENTANYL CITRATE [Concomitant]
     Active Substance: FENTANYL CITRATE
     Indication: Product used for unknown indication
     Dosage: DOSE UNKNOWN
     Route: 062
     Dates: start: 20230710
  19. FENTANYL CITRATE [Concomitant]
     Active Substance: FENTANYL CITRATE
     Dosage: DOSE UNKNOWN
     Route: 062
     Dates: start: 202308
  20. NALDEMEDINE TOSYLATE [Concomitant]
     Active Substance: NALDEMEDINE TOSYLATE
     Indication: Product used for unknown indication
     Route: 065

REACTIONS (11)
  - Suicide attempt [Recovered/Resolved]
  - Ileus paralytic [Recovered/Resolved]
  - Constipation [Unknown]
  - Decreased appetite [Unknown]
  - Pneumonia bacterial [Unknown]
  - Spinal compression fracture [Unknown]
  - Cytomegalovirus viraemia [Unknown]
  - Pyrexia [Recovered/Resolved]
  - Diarrhoea [Unknown]
  - Peripheral sensory neuropathy [Unknown]
  - Peripheral motor neuropathy [Unknown]

NARRATIVE: CASE EVENT DATE: 20230101
